FAERS Safety Report 10361980 (Version 1)
Quarter: 2014Q3

REPORT INFORMATION
  Report Type: Spontaneous
  Country: HR (occurrence: HR)
  Receive Date: 20140805
  Receipt Date: 20140805
  Transmission Date: 20150326
  Serious: Yes (Life-Threatening)
  Sender: FDA-Public Use
  Company Number: HR-MERCK-1408HRV000819

PATIENT
  Age: 67 Year
  Sex: Female
  Weight: 77 kg

DRUGS (4)
  1. ESMERON [Suspect]
     Active Substance: ROCURONIUM BROMIDE
     Indication: HYPOTONIA
     Dosage: 10 MG/ML; 100 MG
     Route: 042
     Dates: start: 20140505, end: 20140505
  2. SUFENTANIL [Concomitant]
     Active Substance: SUFENTANIL
     Indication: INDUCTION OF ANAESTHESIA
     Dosage: 5 MIKRG/ML; 100 MIKR.GR
     Route: 042
     Dates: start: 20140505, end: 20140505
  3. DORMICUM (MIDAZOLAM HYDROCHLORIDE) [Concomitant]
     Active Substance: MIDAZOLAM HYDROCHLORIDE
     Indication: INDUCTION OF ANAESTHESIA
     Dosage: 5 MG/ML; 5 MG
     Route: 042
     Dates: start: 20140505, end: 20140505
  4. HYPNOMIDATE [Concomitant]
     Active Substance: ETOMIDATE SULFATE
     Indication: INDUCTION OF ANAESTHESIA
     Dosage: 2 MG/ML; 20 MG
     Route: 042
     Dates: start: 20140505, end: 20140505

REACTIONS (9)
  - Anaphylactic shock [Recovered/Resolved with Sequelae]
  - Erythema [Recovered/Resolved]
  - Oedema mucosal [Recovered/Resolved]
  - Tachycardia [Recovered/Resolved with Sequelae]
  - Hypotension [Recovered/Resolved with Sequelae]
  - Cerebrovascular accident [Not Recovered/Not Resolved]
  - Urticaria [Recovered/Resolved]
  - Angioedema [Recovered/Resolved]
  - Hemiplegia [Not Recovered/Not Resolved]

NARRATIVE: CASE EVENT DATE: 20140505
